FAERS Safety Report 9312923 (Version 7)
Quarter: 2015Q1

REPORT INFORMATION
  Report Type: Spontaneous
  Country: US (occurrence: US)
  Receive Date: 20130528
  Receipt Date: 20150323
  Transmission Date: 20150721
  Serious: Yes (Hospitalization, Other)
  Sender: FDA-Public Use
  Company Number: US-009507513-1305USA013118

PATIENT
  Sex: Male
  Weight: 97.96 kg

DRUGS (3)
  1. BENICAR [Concomitant]
     Active Substance: OLMESARTAN MEDOXOMIL
     Indication: HYPERTENSION
     Dosage: 20 MG, UNK
     Route: 048
     Dates: start: 2003
  2. PROPECIA [Suspect]
     Active Substance: FINASTERIDE
     Indication: ALOPECIA
     Dosage: 1 MG, QD
     Route: 048
     Dates: start: 200504, end: 200707
  3. NORVASC [Concomitant]
     Active Substance: AMLODIPINE BESYLATE
     Indication: HYPERTENSION
     Dosage: 10 MG, UNK
     Route: 048
     Dates: start: 2003

REACTIONS (42)
  - Oedema peripheral [Unknown]
  - Blood urine present [Unknown]
  - Hyperglycaemia [Unknown]
  - Hypertension [Recovered/Resolved]
  - Nocturia [Not Recovered/Not Resolved]
  - Prostatomegaly [Unknown]
  - Anxiety [Unknown]
  - Animal bite [Unknown]
  - Type 2 diabetes mellitus [Unknown]
  - Sleep apnoea syndrome [Unknown]
  - Weight decreased [Unknown]
  - Calculus ureteric [Unknown]
  - Coronary artery disease [Unknown]
  - Cholecystectomy [Unknown]
  - Atelectasis [Unknown]
  - Hyperlipidaemia [Unknown]
  - Semen volume decreased [Unknown]
  - Penile burning sensation [Recovering/Resolving]
  - Appendicectomy [Unknown]
  - Radiotherapy [Unknown]
  - Urinary tract infection [Unknown]
  - Hypokalaemia [Not Recovered/Not Resolved]
  - Erectile dysfunction [Unknown]
  - Pulmonary fibrosis [Unknown]
  - Osteoarthritis [Not Recovered/Not Resolved]
  - Lipoma [Unknown]
  - Lymphadenopathy [Unknown]
  - Pneumonia [Unknown]
  - Diarrhoea [Unknown]
  - Appendicitis [Unknown]
  - Prostatic specific antigen increased [Unknown]
  - Varicose vein operation [Unknown]
  - Diabetes mellitus inadequate control [Unknown]
  - Hot flush [Unknown]
  - Prostate cancer [Unknown]
  - Metastases to lymph nodes [Unknown]
  - Inflammation [Unknown]
  - Dysuria [Recovered/Resolved]
  - White blood cells urine positive [Unknown]
  - Nephrolithiasis [Unknown]
  - Micturition disorder [Unknown]
  - Depression [Unknown]

NARRATIVE: CASE EVENT DATE: 2007
